FAERS Safety Report 8395394-9 (Version None)
Quarter: 2012Q2

REPORT INFORMATION
  Report Type: 
  Country: None (occurrence: None)
  Receive Date: 20120530
  Receipt Date: 20120529
  Transmission Date: 20120825
  Serious: Yes (Death, Hospitalization)
  Sender: FDA-Public Use
  Company Number: IT-AMGEN-ITACT2012008963

PATIENT
  Age: 67 Year
  Sex: Male
  Weight: 98 kg

DRUGS (18)
  1. OXALIPLATIN [Concomitant]
     Dosage: 185 MG, UNK
     Dates: start: 20110307, end: 20110817
  2. DOXAZOSIN MESYLATE [Concomitant]
     Indication: HYPERTENSION
     Dosage: 2 MG, UNK
     Route: 048
     Dates: start: 20070615
  3. FLUOROURACIL [Concomitant]
     Dosage: UNK
     Dates: start: 20110307, end: 20110819
  4. ACETAMINOPHEN AND CODEINE PHOSPHATE [Concomitant]
     Indication: PAIN
     Dosage: UNK UNK, UNK
     Route: 048
     Dates: start: 20110509
  5. MORPHINE [Concomitant]
     Indication: PAIN
     Dosage: 3 MG, UNK
     Route: 042
     Dates: start: 20110722
  6. DIAZEPAM [Concomitant]
     Indication: ANXIETY
     Dosage: UNK
     Route: 048
     Dates: start: 20110722
  7. NEBIVOLOL [Concomitant]
     Indication: HYPERTENSION
     Dosage: 2.5 MG, UNK
     Route: 048
     Dates: start: 20070615
  8. CETIRIZINE HCL [Concomitant]
     Indication: RASH
     Dosage: 10 MG, UNK
     Route: 048
     Dates: start: 20110321, end: 20111102
  9. VITAMIN K1 [Concomitant]
     Indication: PARONYCHIA
     Dosage: UNK
     Route: 061
     Dates: start: 20110418
  10. FRAXIPARIN [Concomitant]
     Indication: EMBOLISM
     Dosage: 0.6 ML, UNK
     Route: 058
     Dates: start: 20070615
  11. IBRUPROFEN [Concomitant]
     Indication: PAIN
     Dosage: 600 MG, UNK
     Route: 048
     Dates: start: 20110715
  12. DOXICYCLINE [Concomitant]
     Indication: RASH
     Dosage: 100 MG, UNK
     Route: 048
     Dates: start: 20110321
  13. PANITUMUMAB [Suspect]
     Indication: COLORECTAL CANCER METASTATIC
     Dosage: 516 MG, UNK
     Dates: start: 20110307, end: 20111010
  14. PANTOPRAZOLE SODIUM [Concomitant]
     Indication: PROPHYLAXIS
     Dosage: 20 MG, UNK
     Route: 048
     Dates: start: 20110722
  15. OXYCONTIN [Concomitant]
     Indication: PAIN
     Dosage: 20 MG, UNK
     Route: 048
     Dates: start: 20110722
  16. LEUCOVORIN CALCIUM [Concomitant]
     Dosage: 440 MG, UNK
     Dates: start: 20110307, end: 20110817
  17. MAGNESIUM PIDOLATE [Concomitant]
     Indication: HYPOMAGNESAEMIA
     Dosage: 2.25 G, UNK
     Route: 048
     Dates: start: 20110418
  18. VITAMIN K1 [Concomitant]
     Indication: RASH

REACTIONS (1)
  - INTERSTITIAL LUNG DISEASE [None]
